FAERS Safety Report 13269746 (Version 1)
Quarter: 2017Q1

REPORT INFORMATION
  Report Type: Spontaneous
  Country: CH (occurrence: CH)
  Receive Date: 20170224
  Receipt Date: 20170224
  Transmission Date: 20170428
  Serious: Yes (Hospitalization)
  Sender: FDA-Public Use
  Company Number: CH-BAYER-2017-031795

PATIENT
  Age: 80 Year
  Sex: Female

DRUGS (10)
  1. ELTROXIN [Concomitant]
     Active Substance: LEVOTHYROXINE
  2. MARCOUMAR [Interacting]
     Active Substance: PHENPROCOUMON
     Indication: AORTIC VALVE REPLACEMENT
     Dosage: 1 DF, UNK
     Route: 048
     Dates: start: 201610, end: 201701
  3. CONCOR [Concomitant]
     Active Substance: BISOPROLOL FUMARATE
  4. VI-DE 3 [Concomitant]
     Active Substance: CHOLECALCIFEROL
  5. INEGY [Concomitant]
     Active Substance: EZETIMIBE\SIMVASTATIN
  6. TORASEMID [Concomitant]
     Active Substance: TORSEMIDE
  7. KCL-RETARD [Concomitant]
     Active Substance: POTASSIUM CHLORIDE
  8. PANTOZOL [Concomitant]
     Active Substance: PANTOPRAZOLE SODIUM
  9. QUETIAPINE. [Concomitant]
     Active Substance: QUETIAPINE
  10. ASPIRIN CARDIO 100 MG [Suspect]
     Active Substance: ASPIRIN
     Indication: AORTIC VALVE REPLACEMENT
     Dosage: 100 MG, QD
     Route: 048
     Dates: start: 201610, end: 201701

REACTIONS (5)
  - Haemorrhagic anaemia [Recovered/Resolved]
  - Lower gastrointestinal haemorrhage [Recovered/Resolved]
  - Epistaxis [Recovered/Resolved]
  - Drug interaction [Recovered/Resolved]
  - International normalised ratio increased [Recovered/Resolved]

NARRATIVE: CASE EVENT DATE: 201610
